FAERS Safety Report 8024566-8 (Version None)
Quarter: 2012Q1

REPORT INFORMATION
  Report Type: 
  Country: None (occurrence: None)
  Receive Date: 20120105
  Receipt Date: 20120103
  Transmission Date: 20120608
  Serious: Yes (Death)
  Sender: FDA-Public Use
  Company Number: US-PFIZER INC-2011310265

PATIENT
  Age: 50 Year
  Sex: Female

DRUGS (8)
  1. OXYCODONE HCL [Suspect]
     Dosage: UNK
     Route: 048
  2. MORPHINE SULFATE [Suspect]
     Dosage: UNK
     Route: 048
  3. ALPRAZOLAM [Suspect]
     Dosage: UNK
     Route: 048
  4. ESZOPICLONE [Suspect]
     Dosage: UNK
     Route: 048
  5. FLUOXETINE [Suspect]
     Dosage: UNK
     Route: 048
  6. NAPROXEN [Suspect]
     Dosage: UNK
     Route: 048
  7. IBUPROFEN [Suspect]
     Dosage: UNK
     Route: 048
  8. ACETAMINOPHEN [Suspect]
     Dosage: UNK
     Route: 048

REACTIONS (3)
  - RESPIRATORY ARREST [None]
  - CARDIAC ARREST [None]
  - COMPLETED SUICIDE [None]
